FAERS Safety Report 4568452-4 (Version None)
Quarter: 2005Q1

REPORT INFORMATION
  Report Type: 
  Country: None (occurrence: None)
  Receive Date: 20050131
  Receipt Date: 20050121
  Transmission Date: 20050727
  Serious: Yes (Other)
  Sender: FDA-Public Use
  Company Number: 2005-01-1405

PATIENT
  Sex: Female

DRUGS (2)
  1. REBETOL [Suspect]
     Indication: HEPATITIS C
     Dates: start: 20041015, end: 20041201
  2. PEGASYS [Suspect]
     Indication: HEPATITIS C
     Dates: start: 20041015, end: 20041201

REACTIONS (4)
  - ALOPECIA [None]
  - KERATITIS [None]
  - LYMPHADENOPATHY [None]
  - TOXIC EPIDERMAL NECROLYSIS [None]
